FAERS Safety Report 14901057 (Version 2)
Quarter: 2018Q3

REPORT INFORMATION
  Report Type: Spontaneous
  Country: FR (occurrence: FR)
  Receive Date: 20180516
  Receipt Date: 20180706
  Transmission Date: 20181010
  Serious: Yes (Death)
  Sender: FDA-Public Use
  Company Number: FR-PFIZER INC-2018197907

PATIENT
  Age: 64 Year
  Sex: Male
  Weight: 64 kg

DRUGS (4)
  1. OPDIVO [Suspect]
     Active Substance: NIVOLUMAB
     Indication: BRONCHIAL CARCINOMA
     Dosage: 3 MG/KG, 2X/WEEK
     Route: 042
     Dates: start: 20170803, end: 20171020
  2. PACLITAXEL. [Suspect]
     Active Substance: PACLITAXEL
     Dosage: 1 DF, UNK, (1 DF: 380 UNITS NOS)
     Route: 065
     Dates: start: 20171103, end: 20180323
  3. CARBOPLATIN. [Suspect]
     Active Substance: CARBOPLATIN
     Dosage: 1 DF, UNK, (1 DF: 380 UNITS NOS)
     Route: 065
  4. OPDIVO [Suspect]
     Active Substance: NIVOLUMAB
     Indication: NON-SMALL CELL LUNG CANCER

REACTIONS (1)
  - Respiratory distress [Fatal]

NARRATIVE: CASE EVENT DATE: 20180403
